FAERS Safety Report 8994621 (Version 1)
Quarter: 2012Q4

REPORT INFORMATION
  Report Type: Spontaneous
  Country: US (occurrence: None)
  Receive Date: 20121228
  Receipt Date: 20121228
  Transmission Date: 20130627
  Serious: No
  Sender: FDA-Public Use
  Company Number: None

PATIENT
  Age: 32 Year
  Sex: Female
  Weight: 108.86 kg

DRUGS (1)
  1. MONTELUKAST SODIUM TABLETS [Suspect]
     Indication: ASTHMA
     Route: 048
     Dates: start: 20121212, end: 20121226

REACTIONS (2)
  - Product substitution issue [None]
  - Asthma [None]
